FAERS Safety Report 4349134-0 (Version None)
Quarter: 2004Q2

REPORT INFORMATION
  Report Type: 
  Country: None (occurrence: None)
  Receive Date: 20040427
  Receipt Date: 20040427
  Transmission Date: 20050107
  Serious: No
  Sender: FDA-Public Use
  Company Number: None

PATIENT
  Age: 44 Year
  Sex: Female
  Weight: 45.3597 kg

DRUGS (2)
  1. TAZORAC [Suspect]
     Dosage: PEA SIZE NIGHTLY
     Dates: start: 20040309, end: 20040311
  2. MINOCYCLINE HCL [Suspect]

REACTIONS (2)
  - ROSACEA [None]
  - STOMACH DISCOMFORT [None]
